FAERS Safety Report 6457154-5 (Version None)
Quarter: 2009Q4

REPORT INFORMATION
  Report Type: 
  Country: None (occurrence: None)
  Receive Date: 20091125
  Receipt Date: 20091123
  Transmission Date: 20100525
  Serious: Yes (Other)
  Sender: FDA-Public Use
  Company Number: D0063483A

PATIENT
  Sex: Female
  Weight: 64 kg

DRUGS (2)
  1. TRIZIVIR [Suspect]
     Indication: HIV INFECTION
     Route: 048
     Dates: start: 20020101
  2. METOPROLOL [Concomitant]
     Dosage: 50MG IN THE MORNING
     Route: 048

REACTIONS (3)
  - HYPERTENSION [None]
  - HYPERTROPHIC CARDIOMYOPATHY [None]
  - VENTRICULAR EXTRASYSTOLES [None]
